FAERS Safety Report 13520907 (Version 1)
Quarter: 2017Q2

REPORT INFORMATION
  Report Type: Spontaneous
  Country: US (occurrence: US)
  Receive Date: 20170508
  Receipt Date: 20170508
  Transmission Date: 20170830
  Serious: No
  Sender: FDA-Public Use
  Company Number: US-ALARA PHARMACEUTICAL CORPORATION-2020364

PATIENT
  Age: 80 Year
  Sex: Female
  Weight: 60.46 kg

DRUGS (1)
  1. LEVO-T [Suspect]
     Active Substance: LEVOTHYROXINE SODIUM
     Indication: THYROID FUNCTION TEST ABNORMAL
     Route: 048
     Dates: end: 20160425

REACTIONS (5)
  - Therapy cessation [None]
  - No reaction on previous exposure to drug [None]
  - Pruritus generalised [Recovering/Resolving]
  - Paraesthesia [Recovered/Resolved]
  - Urticaria [Recovered/Resolved]
